FAERS Safety Report 5014133-2 (Version None)
Quarter: 2006Q2

REPORT INFORMATION
  Report Type: 
  Country: None (occurrence: None)
  Receive Date: 20060414
  Receipt Date: 20060206
  Transmission Date: 20061013
  Serious: No
  Sender: FDA-Public Use
  Company Number: 2006SP000643

PATIENT
  Age: 79 Year
  Sex: Female
  Weight: 63.5036 kg

DRUGS (9)
  1. LUNESTA [Suspect]
     Indication: INSOMNIA
     Dosage: 3 MG;QD;ORAL
     Route: 048
     Dates: start: 20060202
  2. VALSARTAN [Concomitant]
  3. THIAZIDES [Concomitant]
  4. RESTORIL [Concomitant]
  5. ATIVAN [Concomitant]
  6. LEVOXYL [Concomitant]
  7. ZOLOFT [Concomitant]
  8. PANTOPRAZOLE [Concomitant]
  9. COUMADIN [Concomitant]

REACTIONS (3)
  - BLOOD PRESSURE INCREASED [None]
  - DRUG INEFFECTIVE [None]
  - INSOMNIA [None]
